FAERS Safety Report 9225513 (Version 2)
Quarter: 2013Q2

REPORT INFORMATION
  Report Type: Spontaneous
  Country: BR (occurrence: BR)
  Receive Date: 20130411
  Receipt Date: 20130415
  Transmission Date: 20140414
  Serious: Yes (Hospitalization)
  Sender: FDA-Public Use
  Company Number: BR-ASTRAZENECA-2013SE22499

PATIENT
  Age: 676 Month
  Sex: Female
  Weight: 72 kg

DRUGS (5)
  1. ONGLYZA [Suspect]
     Indication: DIABETES MELLITUS
     Route: 048
     Dates: start: 201110
  2. ROSUVASTATIN [Suspect]
     Indication: HYPOCHOLESTEROLAEMIA
     Route: 048
     Dates: start: 201201
  3. SOMALGIN CARDIO [Concomitant]
     Indication: ANTICOAGULANT THERAPY
     Dosage: DAILY
     Dates: start: 2005
  4. LOSARTAN POTASSIUM [Concomitant]
     Dosage: DAILY
     Dates: start: 2010
  5. METFORMIN [Concomitant]
     Indication: DIABETES MELLITUS
     Dosage: THREE TIMES A DAY
     Dates: start: 2011

REACTIONS (2)
  - Angina pectoris [Recovered/Resolved]
  - Blood cholesterol increased [Recovering/Resolving]
